FAERS Safety Report 9507363 (Version 1)
Quarter: 2013Q3

REPORT INFORMATION
  Report Type: Report from Study
  Country: US (occurrence: US)
  Receive Date: 20130909
  Receipt Date: 20130909
  Transmission Date: 20140515
  Serious: Yes (Death, Other)
  Sender: FDA-Public Use
  Company Number: US-GENZYME-THYM-1004108

PATIENT
  Age: 26 Year
  Sex: Female

DRUGS (5)
  1. THYMOGLOBULIN [Suspect]
     Indication: BONE MARROW CONDITIONING REGIMEN
     Dosage: 3 MG/KG, QD (ON DAY 5)
     Route: 065
  2. 2-CDA [Suspect]
     Indication: BONE MARROW CONDITIONING REGIMEN
     Dosage: 5 MG/M2, QD, FOR 5 DAYS, DAYS -10 TO -6
     Route: 042
  3. THIOTEPA [Suspect]
     Indication: BONE MARROW CONDITIONING REGIMEN
     Dosage: 200 MG/M2, QD, FOR 3 DAYS, DAYS -5 TO -3
     Route: 042
  4. CYCLOSPORINE [Concomitant]
     Dosage: 2.5 MG/KG, BID, ON DAY 1
     Route: 042
  5. CYCLOSPORINE [Concomitant]
     Dosage: 1.5 MG/KG, BID, INTRAVENOUS WITH TRANSITION TO ORAL
     Route: 065

REACTIONS (5)
  - Haemorrhage intracranial [Fatal]
  - Pulmonary alveolar haemorrhage [Unknown]
  - Thrombocytopenia [Unknown]
  - Neutropenia [Unknown]
  - Anaemia [Unknown]
